FAERS Safety Report 13034325 (Version 1)
Quarter: 2016Q4

REPORT INFORMATION
  Report Type: Spontaneous
  Country: US (occurrence: US)
  Receive Date: 20161215
  Receipt Date: 20161215
  Transmission Date: 20170207
  Serious: Yes (Life-Threatening, Hospitalization, Disabling, Congenital Anomaly, Other)
  Sender: FDA-Public Use
  Company Number: None

PATIENT
  Age: 46 Year
  Sex: Female
  Weight: 49.5 kg

DRUGS (1)
  1. MEDICINAL RECREAT CANABIS HEMP F [Suspect]
     Active Substance: CANNABIS SATIVA SUBSP. INDICA TOP

REACTIONS (6)
  - Victim of crime [None]
  - Judgement impaired [None]
  - Abnormal behaviour [None]
  - Cardiac arrest [None]
  - Poisoning [None]
  - Hepatic cirrhosis [None]
